FAERS Safety Report 13371571 (Version 4)
Quarter: 2017Q2

REPORT INFORMATION
  Report Type: Spontaneous
  Country: US (occurrence: US)
  Receive Date: 20170324
  Receipt Date: 20170515
  Transmission Date: 20170830
  Serious: Yes (Other)
  Sender: FDA-Public Use
  Company Number: US-ALLERGAN-1711149US

PATIENT
  Age: 60 Year
  Sex: Female

DRUGS (3)
  1. BOTOX COSMETIC [Suspect]
     Active Substance: ONABOTULINUMTOXINA
     Indication: SKIN WRINKLING
     Dosage: UNK, SINGLE
     Route: 030
     Dates: start: 201603, end: 201603
  2. BOTOX COSMETIC [Suspect]
     Active Substance: ONABOTULINUMTOXINA
     Indication: SKIN WRINKLING
  3. ESTROGEN [Concomitant]
     Active Substance: ESTROGENS
     Dosage: LOW DOSE

REACTIONS (3)
  - Blindness [Not Recovered/Not Resolved]
  - Optic neuritis [Unknown]
  - Optic ischaemic neuropathy [Not Recovered/Not Resolved]
